FAERS Safety Report 4851749-8 (Version None)
Quarter: 2005Q4

REPORT INFORMATION
  Report Type: 
  Country: None (occurrence: None)
  Receive Date: 20051209
  Receipt Date: 20051128
  Transmission Date: 20060501
  Serious: Yes (Life-Threatening, Hospitalization, Other)
  Sender: FDA-Public Use
  Company Number: HQWYE265328DEC04

PATIENT
  Age: 69 Year
  Sex: Male

DRUGS (1)
  1. ANCARON (AMIODARONE, TABLET) [Suspect]
     Indication: VENTRICULAR FIBRILLATION
     Dosage: 200 MG 1X PER 1 DAY ORAL
     Route: 048
     Dates: start: 20040101, end: 20040801

REACTIONS (10)
  - ASPARTATE AMINOTRANSFERASE INCREASED [None]
  - BODY TEMPERATURE DECREASED [None]
  - CARDIAC ARREST [None]
  - CHEST DISCOMFORT [None]
  - IMPLANTABLE DEFIBRILLATOR MALFUNCTION [None]
  - INFLAMMATION [None]
  - LIVER DISORDER [None]
  - SYNCOPE [None]
  - VENTRICULAR DYSFUNCTION [None]
  - VENTRICULAR TACHYCARDIA [None]
